FAERS Safety Report 24209257 (Version 1)
Quarter: 2024Q3

REPORT INFORMATION
  Report Type: Spontaneous
  Country: GB (occurrence: GB)
  Receive Date: 20240814
  Receipt Date: 20240814
  Transmission Date: 20241017
  Serious: Yes (Other)
  Sender: PFIZER
  Company Number: GB-MHRA-TPP16744210C21057730YC1723109291858

PATIENT
  Age: 66 Year
  Sex: Female
  Weight: 100 kg

DRUGS (9)
  1. SPIRONOLACTONE [Suspect]
     Active Substance: SPIRONOLACTONE
     Dosage: 12.5 MG, 1X/DAY (WITH FOOD INCREASED)
  2. COCODAMOL [Concomitant]
     Active Substance: ACETAMINOPHEN\CODEINE PHOSPHATE
     Dosage: 1 OR 2 DF, 4X/DAY, AS NEEDED
     Dates: start: 20240208
  3. BECLOMETHASONE\FORMOTEROL [Concomitant]
     Active Substance: BECLOMETHASONE\FORMOTEROL
     Dosage: FREQ:12 H;
     Dates: start: 20240208
  4. VENTOLIN [Concomitant]
     Active Substance: ALBUTEROL SULFATE
     Route: 055
     Dates: start: 20240208
  5. APIXABAN [Concomitant]
     Active Substance: APIXABAN
     Dosage: FREQ:12 H;
     Dates: start: 20240308
  6. BISOPROLOL [Concomitant]
     Active Substance: BISOPROLOL\BISOPROLOL FUMARATE
     Dosage: 1 DF, 1X/DAY
     Dates: start: 20240308
  7. DAPAGLIFLOZIN [Concomitant]
     Active Substance: DAPAGLIFLOZIN
     Dosage: 1 DF, 1X/DAY
     Dates: start: 20240308
  8. FUROSEMIDE [Concomitant]
     Active Substance: FUROSEMIDE
     Dosage: 1 DF, 1X/DAY EACH MORNING
     Dates: start: 20240308
  9. RAMIPRIL [Concomitant]
     Active Substance: RAMIPRIL
     Dosage: 1 DF, 1X/DAY
     Dates: start: 20240308

REACTIONS (5)
  - Brain fog [Recovering/Resolving]
  - Dysarthria [Recovered/Resolved]
  - Malaise [Unknown]
  - Headache [Recovering/Resolving]
  - Tinnitus [Recovered/Resolved]
